FAERS Safety Report 17049528 (Version 2)
Quarter: 2019Q4

REPORT INFORMATION
  Report Type: Spontaneous
  Country: DE (occurrence: DE)
  Receive Date: 20191119
  Receipt Date: 20191217
  Transmission Date: 20200122
  Serious: Yes (Life-Threatening, Hospitalization, Other)
  Sender: FDA-Public Use
  Company Number: DE-009507513-1911DEU005469

PATIENT
  Age: 69 Year
  Sex: Female
  Weight: 68 kg

DRUGS (2)
  1. KEYTRUDA [Suspect]
     Active Substance: PEMBROLIZUMAB
     Indication: NON-SMALL CELL LUNG CANCER
     Dosage: 200 MILLIGRAM, Q3W(EVERY THREE WEEKS)
     Dates: start: 20190814, end: 20191023
  2. KEYTRUDA [Suspect]
     Active Substance: PEMBROLIZUMAB
     Indication: PANCOAST^S TUMOUR

REACTIONS (13)
  - Hyperthyroidism [Recovered/Resolved]
  - Alanine aminotransferase decreased [Not Recovered/Not Resolved]
  - Lipase increased [Not Recovered/Not Resolved]
  - Aspartate aminotransferase decreased [Not Recovered/Not Resolved]
  - Drug intolerance [Unknown]
  - Central venous catheterisation [Unknown]
  - Uraemic gastropathy [Unknown]
  - Hypothyroidism [Recovered/Resolved]
  - Blood fibrinogen increased [Not Recovered/Not Resolved]
  - Gastroenteritis [Unknown]
  - Otitis externa [Unknown]
  - Acute kidney injury [Recovered/Resolved]
  - Amylase increased [Not Recovered/Not Resolved]

NARRATIVE: CASE EVENT DATE: 2019
